FAERS Safety Report 4691508-2 (Version None)
Quarter: 2005Q2

REPORT INFORMATION
  Report Type: 
  Country: None (occurrence: None)
  Receive Date: 20050608
  Receipt Date: 20050216
  Transmission Date: 20051028
  Serious: Yes (Other)
  Sender: FDA-Public Use
  Company Number: 395898

PATIENT
  Sex: 0

DRUGS (3)
  1. ACCUTANE [Suspect]
     Dates: start: 20020115, end: 20021215
  2. ISOTRETINOIN [Suspect]
     Dates: start: 20030215, end: 20030515
  3. DEPO-PROVERA SUSPENSION/INJ [Concomitant]

REACTIONS (1)
  - ABORTION SPONTANEOUS [None]
